FAERS Safety Report 21468408 (Version 1)
Quarter: 2022Q4

REPORT INFORMATION
  Report Type: Spontaneous
  Country: GB (occurrence: GB)
  Receive Date: 20221017
  Receipt Date: 20221017
  Transmission Date: 20230113
  Serious: Yes (Other)
  Sender: FDA-Public Use
  Company Number: None

PATIENT
  Age: 69 Year
  Sex: Female
  Weight: 84 kg

DRUGS (26)
  1. REMDESIVIR [Suspect]
     Active Substance: REMDESIVIR
     Indication: Coronavirus infection
     Dosage: SINGLE
     Route: 065
     Dates: end: 20221010
  2. LEVOFLOXACIN [Suspect]
     Active Substance: LEVOFLOXACIN
     Indication: Coronavirus infection
     Dosage: UNK, INHOSPITLA
     Route: 042
  3. LEVOFLOXACIN [Suspect]
     Active Substance: LEVOFLOXACIN
     Dosage: 500 MG TABLET BID
     Route: 048
     Dates: start: 20221010
  4. ATORVASTATIN [Concomitant]
     Active Substance: ATORVASTATIN
  5. BUPRENORPHINE [Concomitant]
     Active Substance: BUPRENORPHINE
  6. CEPHALEXIN [Concomitant]
     Active Substance: CEPHALEXIN
  7. CODEINE [Concomitant]
     Active Substance: CODEINE
  8. DOCUSATE [Concomitant]
     Active Substance: DOCUSATE
  9. DOMPERIDONE [Concomitant]
     Active Substance: DOMPERIDONE
  10. CALCIUM CARBONATE\CHOLECALCIFEROL [Concomitant]
     Active Substance: CALCIUM CARBONATE\CHOLECALCIFEROL
  11. FEXOFENADINE [Concomitant]
     Active Substance: FEXOFENADINE HYDROCHLORIDE
  12. FOLIC ACID [Concomitant]
     Active Substance: FOLIC ACID
  13. HYDROCORTISONE [Concomitant]
     Active Substance: HYDROCORTISONE
  14. INVITA D3 [Concomitant]
  15. LACTULOSE [Concomitant]
     Active Substance: LACTULOSE
  16. LETROZOLE [Concomitant]
     Active Substance: LETROZOLE
  17. MIRABEGRON [Concomitant]
     Active Substance: MIRABEGRON
  18. PANTOPRAZOLE [Concomitant]
     Active Substance: PANTOPRAZOLE
  19. ACETAMINOPHEN [Concomitant]
     Active Substance: ACETAMINOPHEN
  20. PRAMIPEXOLE [Concomitant]
     Active Substance: PRAMIPEXOLE
  21. RASAGILINE [Concomitant]
     Active Substance: RASAGILINE
  22. SENNA TABS [Concomitant]
     Active Substance: SENNOSIDES A AND B
  23. SINEMET [Concomitant]
     Active Substance: CARBIDOPA\LEVODOPA
  24. SUMATRIPTAN [Concomitant]
     Active Substance: SUMATRIPTAN
  25. TRAMADOL [Concomitant]
     Active Substance: TRAMADOL
  26. ZOPICLONE [Concomitant]
     Active Substance: ZOPICLONE

REACTIONS (1)
  - Erythema nodosum [Not Recovered/Not Resolved]

NARRATIVE: CASE EVENT DATE: 20221012
